FAERS Safety Report 4531510-4 (Version None)
Quarter: 2004Q4

REPORT INFORMATION
  Report Type: 
  Country: None (occurrence: None)
  Receive Date: 20041220
  Receipt Date: 20041207
  Transmission Date: 20050328
  Serious: Yes (Other)
  Sender: FDA-Public Use
  Company Number: US-JNJFOC-20040909152

PATIENT
  Sex: Female
  Weight: 83.01 kg

DRUGS (13)
  1. REMICADE [Suspect]
     Route: 042
  2. REMICADE [Suspect]
     Route: 042
  3. REMICADE [Suspect]
     Indication: CROHN'S DISEASE
     Route: 042
  4. PLENDIL [Concomitant]
     Indication: HYPERTENSION
  5. TOPROL-XL [Concomitant]
     Indication: HYPERTENSION
  6. PRINIVIL [Concomitant]
     Indication: HYPERTENSION
  7. ALDOMET [Concomitant]
     Indication: HYPERTENSION
  8. ZOCOR [Concomitant]
  9. PURINETHOL [Concomitant]
     Indication: CROHN'S DISEASE
  10. NEXIUM [Concomitant]
     Indication: CROHN'S DISEASE
  11. FAMOTIDINE [Concomitant]
  12. PERCOCET [Concomitant]
  13. PERCOCET [Concomitant]

REACTIONS (2)
  - ALOPECIA [None]
  - SYSTEMIC LUPUS ERYTHEMATOSUS [None]
